FAERS Safety Report 4889562-8 (Version None)
Quarter: 2006Q1

REPORT INFORMATION
  Report Type: 
  Country: None (occurrence: None)
  Receive Date: 20060120
  Receipt Date: 20060106
  Transmission Date: 20060701
  Serious: Yes (Hospitalization)
  Sender: FDA-Public Use
  Company Number: 2005056750

PATIENT
  Age: 73 Year
  Sex: Male
  Weight: 49.5 kg

DRUGS (2)
  1. IRINOTECAN HCL [Suspect]
     Indication: ILL-DEFINED DISORDER
     Dosage: (90 MG) INTRAVENOUS
     Route: 042
     Dates: start: 20050303, end: 20050324
  2. CAPECITABINE (CAPECITABINE) [Suspect]
     Indication: ILL-DEFINED DISORDER
     Dosage: (2600 MG),ORAL
     Route: 048
     Dates: start: 20050303, end: 20050330

REACTIONS (5)
  - DEHYDRATION [None]
  - DIARRHOEA [None]
  - NAUSEA [None]
  - PALMAR ERYTHEMA [None]
  - PALMAR-PLANTAR ERYTHRODYSAESTHESIA SYNDROME [None]
